FAERS Safety Report 4985261-2 (Version None)
Quarter: 2006Q2

REPORT INFORMATION
  Report Type: 
  Country: None (occurrence: None)
  Receive Date: 20060427
  Receipt Date: 20051012
  Transmission Date: 20061013
  Serious: Yes (Hospitalization, Other)
  Sender: FDA-Public Use
  Company Number: US-MERCK-0510USA06917

PATIENT
  Age: 71 Year
  Sex: Female
  Weight: 86 kg

DRUGS (9)
  1. VIOXX [Suspect]
     Indication: OSTEOARTHRITIS
     Route: 048
     Dates: start: 20010327, end: 20011118
  2. VIOXX [Suspect]
     Route: 048
     Dates: start: 20020101, end: 20021105
  3. VIOXX [Suspect]
     Route: 048
     Dates: start: 20011119, end: 20020101
  4. ASPIRIN [Concomitant]
     Route: 065
  5. EVISTA [Concomitant]
     Route: 065
  6. CHONDROITIN SULFATE SODIUM AND GLUCOSAMINE SULFATE [Concomitant]
     Route: 065
  7. GARLIC [Concomitant]
     Route: 065
  8. LOZOL [Concomitant]
     Route: 065
  9. HYZAAR [Concomitant]
     Route: 048

REACTIONS (12)
  - CYSTITIS INTERSTITIAL [None]
  - CYSTITIS NONINFECTIVE [None]
  - DEHYDRATION [None]
  - GASTROINTESTINAL DISORDER [None]
  - HAEMATURIA [None]
  - HYPERTENSION [None]
  - HYPERTENSIVE CRISIS [None]
  - ISCHAEMIC STROKE [None]
  - MITRAL VALVE INCOMPETENCE [None]
  - OEDEMA [None]
  - RENAL FAILURE [None]
  - SINUSITIS [None]
